FAERS Safety Report 5488422-1 (Version None)
Quarter: 2007Q3

REPORT INFORMATION
  Report Type: 
  Country: None (occurrence: None)
  Receive Date: 20070927
  Receipt Date: 20070717
  Transmission Date: 20080115
  Serious: No
  Sender: FDA-Public Use
  Company Number: US-CVT-070135

PATIENT
  Age: 59 Year
  Sex: Male

DRUGS (1)
  1. RANEXA [Suspect]

REACTIONS (2)
  - TOOTH ABSCESS [None]
  - TOOTHACHE [None]
